FAERS Safety Report 7350300-0 (Version None)
Quarter: 2011Q1

REPORT INFORMATION
  Report Type: 
  Country: None (occurrence: None)
  Receive Date: 20110314
  Receipt Date: 20110309
  Transmission Date: 20110831
  Serious: No
  Sender: FDA-Public Use
  Company Number: US-TEVA-270647USA

PATIENT
  Sex: Female

DRUGS (1)
  1. PLAN B ONE-STEP [Suspect]
     Indication: POST COITAL CONTRACEPTION
     Route: 048

REACTIONS (7)
  - NAUSEA [None]
  - MENSTRUATION IRREGULAR [None]
  - ABDOMINAL PAIN LOWER [None]
  - BREAST TENDERNESS [None]
  - FATIGUE [None]
  - BACK PAIN [None]
  - DIZZINESS [None]
